FAERS Safety Report 7218832-3 (Version None)
Quarter: 2011Q1

REPORT INFORMATION
  Report Type: 
  Country: None (occurrence: None)
  Receive Date: 20110110
  Receipt Date: 20110103
  Transmission Date: 20110831
  Serious: Yes (Other)
  Sender: FDA-Public Use
  Company Number: US-PFIZER INC-2011000995

PATIENT
  Sex: Male
  Weight: 95.238 kg

DRUGS (4)
  1. LYRICA [Suspect]
     Indication: NECK PAIN
     Dosage: 50 MG, 2X/DAY
     Route: 048
     Dates: start: 20100301, end: 20100308
  2. LYRICA [Suspect]
     Indication: MUSCULOSKELETAL PAIN
  3. NEURONTIN [Suspect]
     Indication: MUSCULOSKELETAL PAIN
  4. NEURONTIN [Suspect]
     Indication: NECK PAIN
     Dosage: 300 MG, 3X/DAY
     Route: 048
     Dates: start: 20100815, end: 20110101

REACTIONS (8)
  - MANIA [None]
  - PAIN [None]
  - AGITATION [None]
  - HEART RATE INCREASED [None]
  - ANGER [None]
  - HYPERTENSION [None]
  - MENTAL DISORDER [None]
  - MEMORY IMPAIRMENT [None]
